FAERS Safety Report 20165747 (Version 2)
Quarter: 2022Q1

REPORT INFORMATION
  Report Type: Spontaneous
  Country: US (occurrence: US)
  Receive Date: 20211209
  Receipt Date: 20220131
  Transmission Date: 20220423
  Serious: Yes (Life-Threatening, Hospitalization, Other)
  Sender: FDA-Public Use
  Company Number: US-drreddys-SPO/USA/21/0144526

PATIENT
  Age: 36 Year
  Sex: Female

DRUGS (1)
  1. IBUPROFEN [Suspect]
     Active Substance: IBUPROFEN
     Indication: Oropharyngeal pain

REACTIONS (8)
  - Abdominal abscess [Unknown]
  - Intestinal ischaemia [Recovering/Resolving]
  - Pneumonia [Recovering/Resolving]
  - Enteritis [Recovering/Resolving]
  - Respiratory failure [Recovering/Resolving]
  - Pneumatosis [Recovering/Resolving]
  - Pelvic abscess [Unknown]
  - Stevens-Johnson syndrome [Recovering/Resolving]
